FAERS Safety Report 20304988 (Version 1)
Quarter: 2022Q1

REPORT INFORMATION
  Report Type: Other
  Country: IL (occurrence: IL)
  Receive Date: 20220106
  Receipt Date: 20220106
  Transmission Date: 20220423
  Serious: Yes (Life-Threatening, Other)
  Sender: FDA-Public Use
  Company Number: IL-DUCHESNAY-2021IL000205

PATIENT
  Age: 36 Year
  Sex: Female

DRUGS (1)
  1. DICLECTIN [Suspect]
     Active Substance: DOXYLAMINE SUCCINATE\PYRIDOXINE HYDROCHLORIDE
     Indication: Product used for unknown indication
     Dosage: UNK, BID
     Route: 048
     Dates: start: 20211008

REACTIONS (5)
  - Depression [Unknown]
  - Crying [Unknown]
  - Decreased appetite [Unknown]
  - Suicidal ideation [Unknown]
  - Depressed mood [Unknown]
